FAERS Safety Report 18744630 (Version 1)
Quarter: 2021Q1

REPORT INFORMATION
  Report Type: Spontaneous
  Country: US (occurrence: US)
  Receive Date: 20210115
  Receipt Date: 20210115
  Transmission Date: 20210419
  Serious: No
  Sender: FDA-Public Use
  Company Number: US-SA-2021SA010353

PATIENT
  Age: 58 Year
  Sex: Female

DRUGS (1)
  1. FABRAZYME [Suspect]
     Active Substance: AGALSIDASE BETA
     Indication: FABRY^S DISEASE
     Dosage: 55 TO 60 MG
     Route: 065
     Dates: start: 20130404

REACTIONS (1)
  - Illness [Unknown]

NARRATIVE: CASE EVENT DATE: 20201229
